FAERS Safety Report 15425241 (Version 2)
Quarter: 2018Q3

REPORT INFORMATION
  Report Type: Spontaneous
  Country: SG (occurrence: SG)
  Receive Date: 20180925
  Receipt Date: 20180928
  Transmission Date: 20181010
  Serious: Yes (Hospitalization, Other)
  Sender: FDA-Public Use
  Company Number: SG-PFIZER INC-2018381925

PATIENT
  Age: 36 Year
  Sex: Male

DRUGS (2)
  1. PHENYTOIN. [Suspect]
     Active Substance: PHENYTOIN
     Indication: CEREBRAL HAEMATOMA
     Dosage: 300 MG, DAILY
     Dates: start: 1990
  2. WARFARIN [Concomitant]
     Active Substance: WARFARIN
     Indication: THROMBOSIS PROPHYLAXIS
     Dosage: 3 MG, DAILY
     Dates: start: 198904

REACTIONS (1)
  - Aplasia pure red cell [Recovered/Resolved]
